FAERS Safety Report 8924030 (Version 2)
Quarter: 2013Q4

REPORT INFORMATION
  Report Type: Spontaneous
  Country: GB (occurrence: None)
  Receive Date: 20121116
  Receipt Date: 20131002
  Transmission Date: 20140711
  Serious: Yes (Other)
  Sender: FDA-Public Use
  Company Number: AUR-APL-2012-04853

PATIENT
  Age: 64 Year
  Sex: Female

DRUGS (3)
  1. SIMVASTATIN [Suspect]
     Indication: HYPERTENSION
     Dosage: (40 MG, 2 IN 1 D),
     Route: 048
     Dates: start: 201006
  2. LERCANIDIPINE [Suspect]
     Indication: HYPERTENSION
     Dosage: 20MG (10MG, 2 IN 1 D), ORAL
     Route: 048
     Dates: start: 201104
  3. CANDESARTAN CILEXETIL [Concomitant]

REACTIONS (2)
  - Arthralgia [None]
  - Myopathy [None]
